FAERS Safety Report 5039007-2 (Version None)
Quarter: 2006Q2

REPORT INFORMATION
  Report Type: 
  Country: None (occurrence: None)
  Receive Date: 20060601
  Receipt Date: 20060214
  Transmission Date: 20061013
  Serious: No
  Sender: FDA-Public Use
  Company Number: 2005PV001247

PATIENT
  Age: 57 Year
  Sex: Female
  Weight: 70.7611 kg

DRUGS (19)
  1. BYETTA [Suspect]
     Indication: DIABETES MELLITUS NON-INSULIN-DEPENDENT
     Dosage: SEE IMAGE
     Route: 058
     Dates: start: 20050812, end: 20050801
  2. BYETTA [Suspect]
     Indication: DIABETES MELLITUS NON-INSULIN-DEPENDENT
     Dosage: SEE IMAGE
     Route: 058
     Dates: start: 20050713, end: 20050812
  3. BYETTA [Suspect]
     Indication: DIABETES MELLITUS NON-INSULIN-DEPENDENT
     Dosage: SEE IMAGE
     Route: 058
     Dates: start: 20050801, end: 20060101
  4. BYETTA [Suspect]
     Indication: DIABETES MELLITUS NON-INSULIN-DEPENDENT
     Dosage: SEE IMAGE
     Route: 058
     Dates: start: 20060101
  5. METFORMIN [Concomitant]
  6. GLYBURIDE [Concomitant]
  7. VYTORIN [Concomitant]
  8. LOVASTATIN [Concomitant]
  9. LISINOPRIL [Concomitant]
  10. LEVOTHROID [Concomitant]
  11. ASPIRIN [Concomitant]
  12. ENBREL [Concomitant]
  13. FOLTX [Concomitant]
  14. METHOTREXATE [Concomitant]
  15. CALCIUM + VITAMIN D [Concomitant]
  16. BLACK COHOSH [Concomitant]
  17. MULTIVITAMIN [Concomitant]
  18. SOY [Concomitant]
  19. BELLADONNA [Concomitant]

REACTIONS (7)
  - BLOOD GLUCOSE [None]
  - BLOOD GLUCOSE DECREASED [None]
  - DECREASED APPETITE [None]
  - INJECTION SITE HAEMORRHAGE [None]
  - NAUSEA [None]
  - VOMITING [None]
  - WEIGHT DECREASED [None]
